FAERS Safety Report 5787810-3 (Version None)
Quarter: 2008Q3

REPORT INFORMATION
  Report Type: 
  Country: None (occurrence: None)
  Receive Date: 20080624
  Receipt Date: 20080624
  Transmission Date: 20090109
  Serious: Yes (Life-Threatening, Hospitalization)
  Sender: FDA-Public Use
  Company Number: None

PATIENT
  Age: 49 Year
  Sex: Male

DRUGS (17)
  1. METHADONE HCL [Suspect]
     Indication: DRUG DEPENDENCE
     Dosage: 50 MG TWICE DAILY PO
     Route: 048
  2. HALOPERIDOL [Suspect]
     Indication: AGITATION
     Dosage: 1-2 MG EVERY 2-4 HRS PRN IM
     Route: 030
     Dates: start: 20071015, end: 20071020
  3. HALOPERIDOL [Suspect]
     Indication: ANXIETY
     Dosage: 1-2 MG EVERY 2-4 HRS PRN IM
     Route: 030
     Dates: start: 20071015, end: 20071020
  4. THIAMINE HCL [Concomitant]
  5. CHLORDIAZEPOXIDE [Concomitant]
  6. LORAZEPAM [Concomitant]
  7. ONDANSETRON [Concomitant]
  8. MULTI-VITAMIN [Concomitant]
  9. ACETAMINOPHEN [Concomitant]
  10. METHADONE [Concomitant]
  11. ZOLPIDEM TARTRATE [Concomitant]
  12. FUROSEMIDE [Concomitant]
  13. POTASSIUM CHLORIDE [Concomitant]
  14. MINOCYCLINE HCL [Concomitant]
  15. CLINDAMYCIN HCL [Concomitant]
  16. LEVOFLOXACIN [Concomitant]
  17. VANCOMYCIN [Concomitant]

REACTIONS (8)
  - AGITATION [None]
  - CARDIAC ARREST [None]
  - DIASTOLIC DYSFUNCTION [None]
  - ELECTROCARDIOGRAM QT PROLONGED [None]
  - FLUID OVERLOAD [None]
  - HYPOXIA [None]
  - TREATMENT NONCOMPLIANCE [None]
  - VENTRICULAR TACHYCARDIA [None]
